FAERS Safety Report 6685985-5 (Version None)
Quarter: 2010Q2

REPORT INFORMATION
  Report Type: 
  Country: None (occurrence: None)
  Receive Date: 20100419
  Receipt Date: 20100413
  Transmission Date: 20101027
  Serious: Yes (Hospitalization)
  Sender: FDA-Public Use
  Company Number: PHHY2010US23159

PATIENT
  Sex: Male

DRUGS (7)
  1. LOTENSIN [Interacting]
     Indication: BLOOD PRESSURE
     Dosage: 20 MG PER DAY
     Route: 048
  2. BIOTENE [Interacting]
     Dosage: UNK
  3. COUMADIN [Interacting]
     Indication: ANTICOAGULANT THERAPY
     Route: 048
  4. CARDIZEM [Interacting]
     Indication: HEART RATE IRREGULAR
     Dosage: 180 MG DAILY
     Route: 048
  5. NEXIUM [Interacting]
     Indication: GASTROOESOPHAGEAL REFLUX DISEASE
     Dosage: 40 MG DAILY
     Route: 048
  6. ALLOPURINOL [Suspect]
     Indication: GOUT
     Dosage: 100 MG PER DAY
     Route: 048
  7. ASPIRIN [Interacting]
     Dosage: 81 MG PER DAY
     Route: 048

REACTIONS (7)
  - DIZZINESS [None]
  - DRUG INTERACTION [None]
  - DRY MOUTH [None]
  - MALAISE [None]
  - NAUSEA [None]
  - NERVOUS SYSTEM DISORDER [None]
  - TREMOR [None]
